FAERS Safety Report 5507693-6 (Version None)
Quarter: 2007Q4

REPORT INFORMATION
  Report Type: 
  Country: None (occurrence: None)
  Receive Date: 20071106
  Receipt Date: 20071102
  Transmission Date: 20080405
  Serious: Yes (Congenital Anomaly)
  Sender: FDA-Public Use
  Company Number: B0492627A

PATIENT

DRUGS (1)
  1. PAXIL [Suspect]
     Dosage: 20MG PER DAY

REACTIONS (2)
  - ABASIA [None]
  - DRUG EXPOSURE DURING PREGNANCY [None]
